FAERS Safety Report 5790128-6 (Version None)
Quarter: 2008Q2

REPORT INFORMATION
  Report Type: 
  Country: None (occurrence: None)
  Receive Date: 20080626
  Receipt Date: 20080317
  Transmission Date: 20081010
  Serious: No
  Sender: FDA-Public Use
  Company Number: A0682604A

PATIENT
  Sex: Female

DRUGS (1)
  1. ALLI [Suspect]
     Route: 048
     Dates: start: 20070730

REACTIONS (7)
  - ADVERSE EVENT [None]
  - BACK PAIN [None]
  - DEFAECATION URGENCY [None]
  - GASTROINTESTINAL DISORDER [None]
  - HYPERPHAGIA [None]
  - MOOD ALTERED [None]
  - WEIGHT INCREASED [None]
